FAERS Safety Report 11751863 (Version 1)
Quarter: 2015Q4

REPORT INFORMATION
  Report Type: Spontaneous
  Country: US (occurrence: US)
  Receive Date: 20151118
  Receipt Date: 20151118
  Transmission Date: 20160304
  Serious: No
  Sender: FDA-Public Use
  Company Number: US-ASTRAZENECA-2015SF07130

PATIENT
  Age: 54 Year
  Sex: Female
  Weight: 46.7 kg

DRUGS (1)
  1. CRESTOR [Suspect]
     Active Substance: ROSUVASTATIN CALCIUM
     Indication: BLOOD CHOLESTEROL ABNORMAL
     Route: 048
     Dates: start: 2014

REACTIONS (11)
  - Myalgia [Not Recovered/Not Resolved]
  - Blood glucose increased [Unknown]
  - Intentional product misuse [Unknown]
  - Muscular weakness [Not Recovered/Not Resolved]
  - Amnesia [Unknown]
  - Paraesthesia [Not Recovered/Not Resolved]
  - Blood urine present [Unknown]
  - Protein urine [Unknown]
  - Gait disturbance [Not Recovered/Not Resolved]
  - Muscle atrophy [Not Recovered/Not Resolved]
  - Burning feet syndrome [Not Recovered/Not Resolved]

NARRATIVE: CASE EVENT DATE: 2014
